FAERS Safety Report 19901237 (Version 2)
Quarter: 2025Q3

REPORT INFORMATION
  Report Type: Report from Study
  Country: US (occurrence: US)
  Receive Date: 20210929
  Receipt Date: 20250825
  Transmission Date: 20251021
  Serious: Yes (Hospitalization, Other)
  Sender: TAKEDA
  Company Number: US-SHIRE-US202002097AA

PATIENT
  Sex: Male

DRUGS (5)
  1. HUMAN IMMUNOGLOBULIN G [Suspect]
     Active Substance: HUMAN IMMUNOGLOBULIN G
     Indication: Primary immunodeficiency syndrome
     Dosage: 10 GRAM, 1/WEEK
  2. HYQVIA [Suspect]
     Active Substance: HUMAN IMMUNOGLOBULIN G\HYALURONIDASE (HUMAN RECOMBINANT)
     Indication: Primary immunodeficiency syndrome
  3. HYQVIA [Suspect]
     Active Substance: HUMAN IMMUNOGLOBULIN G\HYALURONIDASE (HUMAN RECOMBINANT)
     Indication: Immunodeficiency common variable
  4. PREDNISONE [Concomitant]
     Active Substance: PREDNISONE
     Indication: Adrenal insufficiency
  5. CORTISONE [Concomitant]
     Active Substance: CORTISONE
     Indication: Adrenal insufficiency
     Dosage: UNK, QD

REACTIONS (13)
  - Atrial fibrillation [Unknown]
  - Malignant melanoma [Unknown]
  - Monoplegia [Unknown]
  - Malaise [Unknown]
  - Influenza like illness [Unknown]
  - Infusion site bruising [Unknown]
  - Blood urine present [Unknown]
  - Blood immunoglobulin G decreased [Unknown]
  - Infusion site haemorrhage [Unknown]
  - Red blood cell sedimentation rate increased [Recovered/Resolved]
  - Fatigue [Unknown]
  - Poor quality sleep [Unknown]
  - Seasonal allergy [Unknown]
